FAERS Safety Report 8438197-9 (Version None)
Quarter: 2012Q2

REPORT INFORMATION
  Report Type: 
  Country: None (occurrence: None)
  Receive Date: 20120614
  Receipt Date: 20120611
  Transmission Date: 20120825
  Serious: Yes (Hospitalization)
  Sender: FDA-Public Use
  Company Number: FR-FRI-1000031305

PATIENT
  Sex: Female

DRUGS (11)
  1. LASIX [Suspect]
     Route: 048
     Dates: end: 20110630
  2. NEBIVOLOL [Suspect]
     Dosage: 1.25 MG
     Route: 048
     Dates: end: 20110630
  3. STILNOX [Concomitant]
     Route: 048
  4. RABEPRAZOLE SODIUM [Concomitant]
     Route: 048
  5. SPIRONOLACTONE [Concomitant]
     Dosage: 25 MG
     Route: 048
  6. CITALOPRAM HYDROBROMIDE [Concomitant]
     Dosage: 5 MG
     Route: 048
  7. ASPIRIN [Concomitant]
     Dosage: 75 MG
     Route: 048
  8. LERCANIDIPINE [Suspect]
     Dosage: 5 MG
     Route: 048
     Dates: end: 20110625
  9. CORDARONE [Concomitant]
     Dosage: 100 MG
     Route: 048
     Dates: start: 20101112, end: 20120207
  10. LEVOTHYROXINE SODIUM [Concomitant]
     Dosage: 100 MG
     Route: 048
  11. LEUCOVORIN CALCIUM [Concomitant]
     Dosage: 10 MG
     Route: 048

REACTIONS (3)
  - DYSPNOEA [None]
  - BALANCE DISORDER [None]
  - HYPOTENSION [None]
